FAERS Safety Report 10517488 (Version 2)
Quarter: 2014Q4

REPORT INFORMATION
  Report Type: Spontaneous
  Country: US (occurrence: US)
  Receive Date: 20141014
  Receipt Date: 20141117
  Transmission Date: 20150528
  Serious: Yes (Hospitalization)
  Sender: FDA-Public Use
  Company Number: US-NOVEN-14US010487

PATIENT
  Age: 54 Year
  Sex: Male

DRUGS (2)
  1. DAYTRANA [Suspect]
     Active Substance: METHYLPHENIDATE
     Dosage: 10 MG, QD
     Route: 062
     Dates: start: 20140911, end: 20140922
  2. DAYTRANA [Suspect]
     Active Substance: METHYLPHENIDATE
     Indication: ATTENTION DEFICIT/HYPERACTIVITY DISORDER
     Dosage: 30 MG, QD
     Route: 062
     Dates: start: 20140923

REACTIONS (4)
  - Drug ineffective [Not Recovered/Not Resolved]
  - Mental disorder [Not Recovered/Not Resolved]
  - Product quality issue [Not Recovered/Not Resolved]
  - Off label use [Not Recovered/Not Resolved]

NARRATIVE: CASE EVENT DATE: 201409
